FAERS Safety Report 15808985 (Version 1)
Quarter: 2019Q1

REPORT INFORMATION
  Report Type: Report from Study
  Country: MX (occurrence: MX)
  Receive Date: 20190110
  Receipt Date: 20190110
  Transmission Date: 20190417
  Serious: Yes (Hospitalization)
  Sender: FDA-Public Use
  Company Number: PHHY2019MX004138

PATIENT
  Sex: Female
  Weight: 65 kg

DRUGS (2)
  1. EXELON PATCH [Suspect]
     Active Substance: RIVASTIGMINE
     Indication: MEMORY IMPAIRMENT
     Dosage: 9.5 MG, PRN PATCH 10 (CM2)
     Route: 062
  2. EXELON PATCH [Suspect]
     Active Substance: RIVASTIGMINE
     Dosage: 4.6 MG, QD PATCH 5 (CM2)
     Route: 062

REACTIONS (4)
  - Inappropriate schedule of product administration [Unknown]
  - Blood pressure decreased [Recovered/Resolved]
  - Abdominal pain upper [Recovered/Resolved]
  - Blood sodium decreased [Recovered/Resolved]
